FAERS Safety Report 24196531 (Version 2)
Quarter: 2024Q3

REPORT INFORMATION
  Report Type: Spontaneous
  Country: US (occurrence: US)
  Receive Date: 20240810
  Receipt Date: 20240919
  Transmission Date: 20241017
  Serious: No
  Sender: SANOFI AVENTIS
  Company Number: US-SA-SAC20240808000914

PATIENT
  Age: 57 Year
  Sex: Female

DRUGS (1)
  1. DUPIXENT [Suspect]
     Active Substance: DUPILUMAB
     Indication: Dermatitis atopic
     Dosage: 300 MG, QOW
     Route: 058

REACTIONS (10)
  - Dyspnoea [Unknown]
  - Chest discomfort [Unknown]
  - Hiccups [Unknown]
  - Dysphagia [Unknown]
  - Respiratory tract congestion [Unknown]
  - Dry skin [Not Recovered/Not Resolved]
  - Burning sensation [Unknown]
  - Skin fissures [Recovering/Resolving]
  - Eye discharge [Unknown]
  - Pruritus [Not Recovered/Not Resolved]
